FAERS Safety Report 12260494 (Version 2)
Quarter: 2017Q2

REPORT INFORMATION
  Report Type: Spontaneous
  Country: US (occurrence: US)
  Receive Date: 20160412
  Receipt Date: 20170405
  Transmission Date: 20170830
  Serious: No
  Sender: FDA-Public Use
  Company Number: US-SA-2016SA041449

PATIENT
  Age: 76 Year
  Sex: Female

DRUGS (1)
  1. ALLEGRA [Suspect]
     Active Substance: FEXOFENADINE HYDROCHLORIDE
     Indication: MULTIPLE ALLERGIES
     Route: 065
     Dates: start: 201601, end: 20160226

REACTIONS (5)
  - Expired product administered [Unknown]
  - Drug ineffective [Unknown]
  - Feeling abnormal [Unknown]
  - Malaise [Unknown]
  - Dysgeusia [Unknown]
